FAERS Safety Report 12723713 (Version 2)
Quarter: 2016Q4

REPORT INFORMATION
  Report Type: Report from Study
  Country: DE (occurrence: DE)
  Receive Date: 20160908
  Receipt Date: 20161102
  Transmission Date: 20170207
  Serious: No
  Sender: FDA-Public Use
  Company Number: PHHY2016DE062820

PATIENT
  Age: 39 Year
  Sex: Female

DRUGS (1)
  1. GILENYA [Suspect]
     Active Substance: FINGOLIMOD HYDROCHLORIDE
     Indication: MULTIPLE SCLEROSIS
     Dosage: QD
     Route: 048
     Dates: start: 20141013

REACTIONS (9)
  - Pain in extremity [Unknown]
  - Back pain [Unknown]
  - High density lipoprotein increased [Unknown]
  - Blood cholesterol increased [Unknown]
  - Lymphocyte count decreased [Unknown]
  - Urinary incontinence [Unknown]
  - Vitamin D deficiency [Unknown]
  - Low density lipoprotein increased [Unknown]
  - Radicular pain [Unknown]

NARRATIVE: CASE EVENT DATE: 20150730
